FAERS Safety Report 8689171 (Version 2)
Quarter: 2012Q4

REPORT INFORMATION
  Report Type: 
  Country: MA (occurrence: MA)
  Receive Date: 20120727
  Receipt Date: 20120913
  Transmission Date: 20130627
  Serious: Yes (Death, Hospitalization)
  Sender: FDA-Public Use
  Company Number: PHHY2012MA063740

PATIENT
  Age: 71 Year
  Sex: Male

DRUGS (3)
  1. PREDNISONE [Suspect]
     Indication: PEMPHIGUS
     Dosage: 10 mg, UNK
  2. AZATHIOPRINE [Suspect]
     Indication: PEMPHIGUS
     Dosage: 100 mg/ day
  3. INSULIN [Concomitant]

REACTIONS (11)
  - Disseminated cryptococcosis [Fatal]
  - Psychomotor retardation [Fatal]
  - Disorientation [Fatal]
  - Nodule [Fatal]
  - Cryptococcosis [Fatal]
  - Infection [Fatal]
  - Loss of consciousness [Fatal]
  - General physical health deterioration [Fatal]
  - Apathy [Fatal]
  - Tenderness [Fatal]
  - Condition aggravated [Fatal]
